FAERS Safety Report 4951689-X (Version None)
Quarter: 2006Q1

REPORT INFORMATION
  Report Type: 
  Country: None (occurrence: None)
  Receive Date: 20060322
  Receipt Date: 20060322
  Transmission Date: 20060701
  Serious: Yes (Life-Threatening, Hospitalization)
  Sender: FDA-Public Use
  Company Number: None

PATIENT
  Age: 19 Year
  Sex: Male
  Weight: 81.6475 kg

DRUGS (1)
  1. ADDERALL 10 [Suspect]
     Indication: ATTENTION DEFICIT/HYPERACTIVITY DISORDER
     Dosage: 10 MG TWICE A DAY PO
     Route: 048
     Dates: start: 20050501, end: 20060222

REACTIONS (3)
  - ACUTE MYOCARDIAL INFARCTION [None]
  - CHEST PAIN [None]
  - INFLUENZA LIKE ILLNESS [None]
